FAERS Safety Report 14877043 (Version 1)
Quarter: 2018Q2

REPORT INFORMATION
  Report Type: Spontaneous
  Country: US (occurrence: US)
  Receive Date: 20180424
  Receipt Date: 20180424
  Transmission Date: 20180711
  Serious: Yes (Other)
  Sender: FDA-Public Use
  Company Number: None

PATIENT

DRUGS (1)
  1. FOCALIN XR [Suspect]
     Active Substance: DEXMETHYLPHENIDATE HYDROCHLORIDE

REACTIONS (8)
  - Hot flush [None]
  - Anxiety [None]
  - Personality change [None]
  - Insomnia [None]
  - Social problem [None]
  - Antisocial behaviour [None]
  - Nasopharyngitis [None]
  - Tinnitus [None]

NARRATIVE: CASE EVENT DATE: 20180101
